FAERS Safety Report 7033659-3 (Version None)
Quarter: 2010Q4

REPORT INFORMATION
  Report Type: 
  Country: None (occurrence: None)
  Receive Date: 20101005
  Receipt Date: 20100921
  Transmission Date: 20110411
  Serious: Yes (Disabling, Other)
  Sender: FDA-Public Use
  Company Number: 2010P1001595

PATIENT
  Sex: Female

DRUGS (2)
  1. METOCLOPRAMIDE [Suspect]
  2. REGLAN (METOCLOPRAMIDE) (NO PREF. NAME) [Suspect]

REACTIONS (10)
  - ACTIVITIES OF DAILY LIVING IMPAIRED [None]
  - ANHEDONIA [None]
  - DEFORMITY [None]
  - ESSENTIAL TREMOR [None]
  - EXTRAPYRAMIDAL DISORDER [None]
  - MENTAL DISORDER [None]
  - MULTIPLE INJURIES [None]
  - NERVOUS SYSTEM DISORDER [None]
  - PAIN [None]
  - QUALITY OF LIFE DECREASED [None]
